FAERS Safety Report 4871618-7 (Version None)
Quarter: 2005Q4

REPORT INFORMATION
  Report Type: 
  Country: None (occurrence: None)
  Receive Date: 20051230
  Receipt Date: 20051216
  Transmission Date: 20060501
  Serious: Yes (Hospitalization)
  Sender: FDA-Public Use
  Company Number: DK-2005-023116

PATIENT
  Age: 68 Year
  Sex: Female

DRUGS (3)
  1. MENOSTAR [Suspect]
     Indication: OSTEOPOROSIS PROPHYLAXIS
     Dosage: E2:0.014MG VS RALOXIFENE:60MG PO, TRANSDERMAL
     Route: 048
     Dates: start: 20040512
  2. CALCICHEW [Concomitant]
  3. CLOTRIMAZOLE [Concomitant]

REACTIONS (3)
  - BENIGN BILIARY NEOPLASM [None]
  - CHOLELITHIASIS [None]
  - GASTROINTESTINAL PAIN [None]
